FAERS Safety Report 7645770-4 (Version None)
Quarter: 2011Q3

REPORT INFORMATION
  Report Type: 
  Country: None (occurrence: None)
  Receive Date: 20110729
  Receipt Date: 20110718
  Transmission Date: 20111222
  Serious: Yes (Hospitalization, Other)
  Sender: FDA-Public Use
  Company Number: US-ELI_LILLY_AND_COMPANY-US201107002264

PATIENT
  Sex: Female

DRUGS (3)
  1. HUMULIN R [Suspect]
     Indication: TYPE 2 DIABETES MELLITUS
     Dosage: UNK, PRN
  2. HUMULIN R [Suspect]
     Dosage: UNK, PRN
  3. LANTUS [Concomitant]
     Dosage: UNK

REACTIONS (17)
  - CARDIAC DISORDER [None]
  - WRONG DRUG ADMINISTERED [None]
  - CONFUSIONAL STATE [None]
  - INSULIN RESISTANCE [None]
  - TRANSIENT ISCHAEMIC ATTACK [None]
  - PALPITATIONS [None]
  - HYPOGLYCAEMIC COMA [None]
  - ACCIDENTAL OVERDOSE [None]
  - DRUG INEFFECTIVE [None]
  - PAIN IN EXTREMITY [None]
  - BLOOD GLUCOSE INCREASED [None]
  - BLOOD GLUCOSE DECREASED [None]
  - BLINDNESS [None]
  - VISUAL ACUITY REDUCED [None]
  - EYE DISORDER [None]
  - BLOOD PRESSURE INCREASED [None]
  - DRUG DOSE OMISSION [None]
